FAERS Safety Report 19820635 (Version 2)
Quarter: 2021Q3

REPORT INFORMATION
  Report Type: Other
  Country: US (occurrence: US)
  Receive Date: 20210913
  Receipt Date: 20210921
  Transmission Date: 20211014
  Serious: Yes (Other)
  Sender: FDA-Public Use
  Company Number: US-ROCHE-2906484

PATIENT

DRUGS (12)
  1. LORAZEPAM. [Suspect]
     Active Substance: LORAZEPAM
     Indication: SEDATION
     Route: 065
  2. DIAZEPAM. [Suspect]
     Active Substance: DIAZEPAM
     Indication: SEDATION
     Route: 065
  3. ZOLPIDEM [Suspect]
     Active Substance: ZOLPIDEM TARTRATE
     Indication: SEDATION
     Route: 065
  4. CLONAZEPAM. [Suspect]
     Active Substance: CLONAZEPAM
     Indication: SEDATION
     Route: 065
  5. MIDAZOLAM HYDROCHLORIDE. [Suspect]
     Active Substance: MIDAZOLAM HYDROCHLORIDE
     Indication: SEDATION
     Route: 065
  6. TEMAZEPAM. [Suspect]
     Active Substance: TEMAZEPAM
     Indication: SEDATION
     Route: 065
  7. ZOLPIDEM TARTRATE. [Suspect]
     Active Substance: ZOLPIDEM TARTRATE
     Indication: SEDATION
     Route: 065
  8. GABAPENTIN. [Suspect]
     Active Substance: GABAPENTIN
     Indication: SEDATION
     Route: 065
  9. ALPRAZOLAM. [Suspect]
     Active Substance: ALPRAZOLAM
     Indication: SEDATION
     Route: 065
  10. OLICERIDINE. [Suspect]
     Active Substance: OLICERIDINE
     Indication: PAIN
     Route: 042
  11. MIDAZOLAM. [Suspect]
     Active Substance: MIDAZOLAM
     Indication: SEDATION
     Route: 065
  12. PREGABALIN. [Suspect]
     Active Substance: PREGABALIN
     Indication: SEDATION
     Route: 065

REACTIONS (1)
  - Respiratory depression [Unknown]
